FAERS Safety Report 6752740-7 (Version None)
Quarter: 2010Q2

REPORT INFORMATION
  Report Type: 
  Country: None (occurrence: None)
  Receive Date: 20100528
  Receipt Date: 20100519
  Transmission Date: 20101027
  Serious: Yes (Hospitalization)
  Sender: FDA-Public Use
  Company Number: 2010GW000387

PATIENT
  Age: 18 Day
  Sex: Female
  Weight: 2.5 kg

DRUGS (1)
  1. TAMBOCOR [Suspect]
     Indication: HEART RATE IRREGULAR
     Dosage: 4 MG; Q8H; PO
     Route: 048
     Dates: start: 20090801

REACTIONS (5)
  - HEART RATE IRREGULAR [None]
  - HYPOTENSION [None]
  - INCORRECT DOSE ADMINISTERED [None]
  - OVERDOSE [None]
  - SUPRAVENTRICULAR TACHYCARDIA [None]
